FAERS Safety Report 9510778 (Version 2)
Quarter: 2013Q3

REPORT INFORMATION
  Report Type: Report from Study
  Country: US (occurrence: US)
  Receive Date: 20130910
  Receipt Date: 20130910
  Transmission Date: 20140515
  Serious: Yes (Other)
  Sender: FDA-Public Use
  Company Number: US-ROCHE-1107874

PATIENT
  Age: 66 Year
  Sex: Female
  Weight: 68.1 kg

DRUGS (21)
  1. ZELBORAF [Suspect]
     Indication: METASTATIC MALIGNANT MELANOMA
     Route: 048
     Dates: start: 20120701
  2. ZELBORAF [Suspect]
     Route: 048
  3. METROPOLOL COMP [Concomitant]
     Route: 048
  4. LISINOPRIL [Concomitant]
     Route: 048
  5. SIMVASTATIN [Concomitant]
     Indication: BLOOD CHOLESTEROL
     Route: 048
  6. PHENERGAN [Concomitant]
     Indication: NAUSEA
     Route: 048
     Dates: start: 20120716
  7. AMLODIPINE BESYLATE [Concomitant]
     Dosage: QD
     Route: 048
  8. ASPIR 81 [Concomitant]
     Route: 048
  9. CLONIDINE HCL [Concomitant]
     Route: 048
  10. HYDROCODONE BITARTRATE/ACETAMINOPHEN [Concomitant]
     Dosage: 10 -325 MG
     Route: 048
  11. ISOSORBIDE MONONITRATE [Concomitant]
     Route: 048
  12. LASIX [Concomitant]
     Route: 048
  13. LISINOPRIL [Concomitant]
     Route: 048
  14. LOVASTATIN [Concomitant]
     Route: 048
  15. METFORMIN HYDROCHLORIDE [Concomitant]
     Dosage: QD
     Route: 065
  16. METOPROLOL TARTRATE [Concomitant]
     Route: 065
  17. NORCO [Concomitant]
     Dosage: 10-325 MG  AS NEDDED
     Route: 048
  18. OMEPRAZOLE [Concomitant]
  19. POTASSIUM CHLORIDE [Concomitant]
     Dosage: SUSTAINE RELEASE TABLET
     Route: 065
  20. PROMETHAZINE HYDROCHLORIDE [Concomitant]
     Route: 048
  21. SYNTHROID [Concomitant]
     Route: 065

REACTIONS (28)
  - Cataract [Not Recovered/Not Resolved]
  - Cataract [Not Recovered/Not Resolved]
  - Squamous cell carcinoma [Not Recovered/Not Resolved]
  - Squamous cell carcinoma of skin [Not Recovered/Not Resolved]
  - Dyspepsia [Recovered/Resolved]
  - Weight decreased [Recovering/Resolving]
  - Pruritus [Not Recovered/Not Resolved]
  - Mass [Not Recovered/Not Resolved]
  - Vision blurred [Not Recovered/Not Resolved]
  - Blood potassium decreased [Unknown]
  - Hypokalaemia [Unknown]
  - Dry skin [Not Recovered/Not Resolved]
  - Diarrhoea [Recovering/Resolving]
  - Dry skin [Recovered/Resolved]
  - Diarrhoea [Recovered/Resolved]
  - Skin cancer [Recovered/Resolved]
  - Skin exfoliation [Not Recovered/Not Resolved]
  - Visual impairment [Not Recovered/Not Resolved]
  - Nausea [Recovering/Resolving]
  - Vomiting [Recovering/Resolving]
  - Eye irritation [Not Recovered/Not Resolved]
  - Eye infection [Not Recovered/Not Resolved]
  - Squamous cell carcinoma of skin [Not Recovered/Not Resolved]
  - Weight decreased [Recovered/Resolved]
  - Hypertension [Recovering/Resolving]
  - Eyelid infection [Not Recovered/Not Resolved]
  - Throat lesion [Not Recovered/Not Resolved]
  - Skin lesion [Not Recovered/Not Resolved]
